FAERS Safety Report 18896489 (Version 1)
Quarter: 2021Q1

REPORT INFORMATION
  Report Type: Spontaneous
  Country: US (occurrence: US)
  Receive Date: 20210211
  Receipt Date: 20210211
  Transmission Date: 20210420
  Serious: Yes (Other)
  Sender: FDA-Public Use
  Company Number: None

PATIENT
  Age: 60 Year
  Sex: Female
  Weight: 102.97 kg

DRUGS (1)
  1. SUCCINYLCHOLINE (SUCCINYLCHOLINE CHLORIDE 100MG/ML INJ) [Suspect]
     Active Substance: SUCCINYLCHOLINE CHLORIDE
     Indication: SURGERY
     Dates: start: 20200807, end: 20200807

REACTIONS (2)
  - Respiratory depression [None]
  - Complication associated with device [None]

NARRATIVE: CASE EVENT DATE: 20200807
